FAERS Safety Report 6136564-X (Version None)
Quarter: 2009Q1

REPORT INFORMATION
  Report Type: 
  Country: None (occurrence: None)
  Receive Date: 20090330
  Receipt Date: 20090318
  Transmission Date: 20090719
  Serious: Yes (Hospitalization)
  Sender: FDA-Public Use
  Company Number: FR-PFIZER INC-2009185323

PATIENT

DRUGS (7)
  1. ORELOX [Suspect]
     Dosage: 8 MG GRANULES
     Route: 048
     Dates: start: 20090114, end: 20090115
  2. TOPLEXIL ^RHONE-POULENC^ [Suspect]
     Dosage: 3 TSP SYRUP
     Route: 048
     Dates: start: 20090108, end: 20090114
  3. CALMIXENE [Suspect]
     Dosage: 3 U SYRUP
     Route: 048
     Dates: start: 20090114, end: 20090115
  4. ANTARENE [Suspect]
     Dosage: 1 U ORAL SOLUTION
     Route: 048
     Dates: start: 20090114, end: 20090114
  5. ANTARENE [Suspect]
     Dosage: 3 U ORAL SOLUTION
     Route: 048
     Dates: start: 20090115, end: 20090115
  6. EFFERALGAN [Concomitant]
     Dosage: UNK
     Route: 048
  7. PREDNISOLONE [Concomitant]
     Dosage: 10 MG
     Route: 048
     Dates: start: 20090108, end: 20090111

REACTIONS (8)
  - ABNORMAL BEHAVIOUR [None]
  - ATAXIA [None]
  - EPSTEIN-BARR VIRUS ANTIBODY POSITIVE [None]
  - LYMPHADENOPATHY [None]
  - MUSCULOSKELETAL STIFFNESS [None]
  - SOMNOLENCE [None]
  - SPEECH DISORDER [None]
  - TREMOR [None]
